FAERS Safety Report 4975282-8 (Version None)
Quarter: 2006Q2

REPORT INFORMATION
  Report Type: 
  Country: None (occurrence: None)
  Receive Date: 20060418
  Receipt Date: 20050511
  Transmission Date: 20061013
  Serious: Yes (Hospitalization)
  Sender: FDA-Public Use
  Company Number: US-MERCK-0505USA01513

PATIENT
  Age: 31 Year
  Sex: Male
  Weight: 59 kg

DRUGS (6)
  1. VIOXX [Suspect]
     Indication: NECK PAIN
     Route: 048
     Dates: start: 19990501, end: 20040901
  2. VIOXX [Suspect]
     Route: 048
     Dates: start: 19990501, end: 20040901
  3. VIOXX [Suspect]
     Indication: ARTHRALGIA
     Route: 048
     Dates: start: 19990501, end: 20040901
  4. VIOXX [Suspect]
     Route: 048
     Dates: start: 19990501, end: 20040901
  5. IMITREX [Concomitant]
     Route: 065
  6. DEPAKOTE [Concomitant]
     Indication: HEADACHE
     Route: 065

REACTIONS (14)
  - ACUTE SINUSITIS [None]
  - ASTHENIA [None]
  - BACK INJURY [None]
  - CARDIOVASCULAR DISORDER [None]
  - CEREBROVASCULAR ACCIDENT [None]
  - CHRONIC SINUSITIS [None]
  - DIZZINESS [None]
  - HEADACHE [None]
  - MIGRAINE [None]
  - MYOFASCIAL PAIN SYNDROME [None]
  - ORGAN FAILURE [None]
  - PAIN [None]
  - POLYTRAUMATISM [None]
  - TRANSIENT ISCHAEMIC ATTACK [None]
